FAERS Safety Report 6521367-4 (Version None)
Quarter: 2009Q4

REPORT INFORMATION
  Report Type: 
  Country: None (occurrence: None)
  Receive Date: 20091230
  Receipt Date: 20091222
  Transmission Date: 20100525
  Serious: Yes (Hospitalization)
  Sender: FDA-Public Use
  Company Number: GB-ASTRAZENECA-2009SE33074

PATIENT
  Age: 75 Year
  Sex: Male
  Weight: 99 kg

DRUGS (9)
  1. QUETIAPINE [Suspect]
     Indication: COGNITIVE DISORDER
     Route: 048
     Dates: start: 20091125, end: 20091203
  2. QUETIAPINE [Suspect]
     Indication: DELIRIUM
     Route: 048
     Dates: start: 20091125, end: 20091203
  3. ASPIRIN [Concomitant]
  4. ATORVASTATIN CALCIUM [Concomitant]
  5. BUPRENORPHINE [Concomitant]
  6. HUMULIN R [Concomitant]
  7. NULYTELY [Concomitant]
  8. SENNA [Concomitant]
  9. XALATAN [Concomitant]

REACTIONS (2)
  - ACUTE MYOCARDIAL INFARCTION [None]
  - ELECTROCARDIOGRAM QT PROLONGED [None]
